FAERS Safety Report 5727503-1 (Version None)
Quarter: 2008Q2

REPORT INFORMATION
  Report Type: 
  Country: None (occurrence: None)
  Receive Date: 20080505
  Receipt Date: 20080421
  Transmission Date: 20081010
  Serious: Yes (Other)
  Sender: FDA-Public Use
  Company Number: CN-ROCHE-560125

PATIENT
  Age: 32 Year
  Sex: Female

DRUGS (2)
  1. XENICAL [Suspect]
     Route: 048
     Dates: start: 20080301, end: 20080301
  2. XENICAL [Suspect]
     Route: 048
     Dates: start: 20080415, end: 20080415

REACTIONS (1)
  - ABORTION THREATENED [None]
